FAERS Safety Report 5305057-1 (Version None)
Quarter: 2007Q2

REPORT INFORMATION
  Report Type: 
  Country: None (occurrence: None)
  Receive Date: 20070423
  Receipt Date: 20070320
  Transmission Date: 20071010
  Serious: Yes (Hospitalization, Other)
  Sender: FDA-Public Use
  Company Number: US-PFIZER INC-2007001940

PATIENT
  Sex: Female
  Weight: 68 kg

DRUGS (2)
  1. BEXTRA [Suspect]
     Indication: ARTHRITIS
  2. BEXTRA [Suspect]
     Indication: DYSMENORRHOEA

REACTIONS (10)
  - AMNESIA [None]
  - ANXIETY [None]
  - BLADDER DISORDER [None]
  - CARDIAC ARREST [None]
  - DEPRESSION [None]
  - PAIN IN EXTREMITY [None]
  - PHOBIA [None]
  - PULMONARY EMBOLISM [None]
  - RENAL FAILURE [None]
  - THROMBOSIS [None]
